FAERS Safety Report 4611654-9 (Version None)
Quarter: 2005Q2

REPORT INFORMATION
  Report Type: 
  Country: None (occurrence: None)
  Receive Date: 20050311
  Receipt Date: 20050110
  Transmission Date: 20051028
  Serious: No
  Sender: FDA-Public Use
  Company Number: 2005-BP-00362BP

PATIENT
  Age: 80 Year
  Sex: Female

DRUGS (8)
  1. SPIRIVA [Suspect]
     Indication: CHRONIC OBSTRUCTIVE PULMONARY DISEASE
     Dosage: 18 MCG (18 MCG), IH
     Route: 055
  2. FLOVENT [Concomitant]
  3. ALBUTEROL [Concomitant]
  4. NITRO PATCH (GLYCERYL TRINITRATE) [Concomitant]
  5. DIGOXIN [Concomitant]
  6. ACETYLSALICYLIC ACID SRT [Concomitant]
  7. COREG [Concomitant]
  8. HERBS [Concomitant]

REACTIONS (2)
  - NERVOUSNESS [None]
  - TREMOR [None]
